FAERS Safety Report 6449940-2 (Version None)
Quarter: 2009Q4

REPORT INFORMATION
  Report Type: 
  Country: None (occurrence: None)
  Receive Date: 20091120
  Receipt Date: 20091120
  Transmission Date: 20100525
  Serious: No
  Sender: FDA-Public Use
  Company Number: None

PATIENT
  Age: 75 Year
  Sex: Male
  Weight: 68.49 kg

DRUGS (1)
  1. TUBERCULIN, PURIFIED PROTEIN DERIVATIVE [Suspect]
     Indication: TUBERCULIN TEST
     Dosage: 1 UNITS UD SQ
     Route: 058
     Dates: start: 20081030, end: 20081030

REACTIONS (2)
  - SKIN INFECTION [None]
  - TUBERCULIN TEST POSITIVE [None]
